FAERS Safety Report 12757050 (Version 1)
Quarter: 2016Q3

REPORT INFORMATION
  Report Type: Spontaneous
  Country: US (occurrence: US)
  Receive Date: 20160918
  Receipt Date: 20160918
  Transmission Date: 20161109
  Serious: No
  Sender: FDA-Public Use
  Company Number: US-CELGENEUS-USA-2016093682

PATIENT
  Sex: Female

DRUGS (1)
  1. OTEZLA [Suspect]
     Active Substance: APREMILAST
     Indication: PSORIASIS
     Dosage: 60 MILLIGRAM
     Route: 048
     Dates: start: 20160907

REACTIONS (5)
  - Oropharyngeal pain [Unknown]
  - Pyrexia [Unknown]
  - Unevaluable event [Unknown]
  - Nausea [Unknown]
  - Diarrhoea [Unknown]
